FAERS Safety Report 4727832-4 (Version None)
Quarter: 2005Q3

REPORT INFORMATION
  Report Type: 
  Country: None (occurrence: None)
  Receive Date: 20050728
  Receipt Date: 20050311
  Transmission Date: 20060218
  Serious: Yes (Hospitalization, Disabling)
  Sender: FDA-Public Use
  Company Number: US-MERCK-0503USA02689

PATIENT
  Age: 57 Year
  Sex: Male
  Weight: 91 kg

DRUGS (15)
  1. VIOXX [Suspect]
     Indication: BACK PAIN
     Route: 048
     Dates: start: 19990101, end: 20040930
  2. VIOXX [Suspect]
     Route: 048
     Dates: start: 19990101, end: 20040930
  3. ASPIRIN [Concomitant]
     Indication: PAIN
     Route: 065
     Dates: start: 19860101
  4. LIPITOR [Concomitant]
     Indication: BLOOD CHOLESTEROL INCREASED
     Route: 065
     Dates: start: 19950101
  5. ZOLOFT [Concomitant]
     Indication: CHRONIC FATIGUE SYNDROME
     Route: 065
     Dates: start: 19950101, end: 20000101
  6. LORAZEPAM [Concomitant]
     Indication: DEPRESSION
     Route: 065
     Dates: start: 20000101
  7. ANAFRANIL [Concomitant]
     Indication: DEPRESSION
     Route: 065
     Dates: start: 20020101
  8. SERZONE [Concomitant]
     Indication: DEPRESSION
     Route: 065
     Dates: start: 20010801, end: 20020201
  9. REMERON [Concomitant]
     Indication: DEPRESSION
     Route: 065
  10. LUVOX [Concomitant]
     Indication: DEPRESSION
     Route: 065
  11. TRANSDERM SCOP [Concomitant]
     Indication: MOTION SICKNESS
     Route: 065
  12. NOVOLIN [Concomitant]
     Indication: DIABETES MELLITUS
     Route: 065
  13. HUMULIN [Concomitant]
     Indication: DIABETES MELLITUS
     Route: 065
  14. GLUCOPHAGE [Concomitant]
     Indication: DIABETES MELLITUS
     Route: 065
  15. GLUCOVANCE [Concomitant]
     Indication: DIABETES MELLITUS
     Route: 065

REACTIONS (10)
  - ANGINA PECTORIS [None]
  - CEREBROVASCULAR ACCIDENT [None]
  - CHEST DISCOMFORT [None]
  - CHEST PAIN [None]
  - CHRONIC FATIGUE SYNDROME [None]
  - ERECTILE DYSFUNCTION [None]
  - HYPERTENSION [None]
  - INSOMNIA [None]
  - LABYRINTHITIS [None]
  - VESTIBULITIS [None]
